FAERS Safety Report 16028566 (Version 1)
Quarter: 2019Q1

REPORT INFORMATION
  Report Type: Spontaneous
  Country: FR (occurrence: FR)
  Receive Date: 20190304
  Receipt Date: 20190304
  Transmission Date: 20190418
  Serious: Yes (Hospitalization)
  Sender: FDA-Public Use
  Company Number: FR-009507513-0906FRA00041

PATIENT
  Age: 35 Year
  Sex: Female
  Weight: 58 kg

DRUGS (28)
  1. EMEND [Suspect]
     Active Substance: APREPITANT
     Dosage: 80 MG, 1X/DAY
     Route: 048
     Dates: start: 20090310, end: 20090320
  2. ASPARAGINASE [Suspect]
     Active Substance: ASPARAGINASE
     Dosage: 10800 IU, QD
     Dates: start: 20090315, end: 20090315
  3. VORICONAZOLE. [Suspect]
     Active Substance: VORICONAZOLE
     Dosage: 200 MG, BID
     Route: 042
     Dates: start: 20090314
  4. ACLOTIN [Concomitant]
     Active Substance: TICLOPIDINE
     Dosage: UNK
     Dates: start: 20090312, end: 20090319
  5. VINCRISTINE SULFATE. [Concomitant]
     Active Substance: VINCRISTINE SULFATE
     Indication: ACUTE LYMPHOCYTIC LEUKAEMIA
     Dates: start: 200902
  6. KIDROLASE [Suspect]
     Active Substance: ASPARAGINASE
     Indication: ACUTE LYMPHOCYTIC LEUKAEMIA
     Dosage: 10800 INTERNATIONAL UNIT, QD
     Route: 048
     Dates: start: 20090313, end: 20090319
  7. ASPARAGINASE [Suspect]
     Active Substance: ASPARAGINASE
     Dosage: 10800 IU, QD
     Dates: start: 20090317, end: 20090317
  8. VINCRISTINE SULFATE. [Concomitant]
     Active Substance: VINCRISTINE SULFATE
     Dosage: 2 MG, QD
     Dates: start: 20090317, end: 20090317
  9. TICLOPIDINE HYDROCHLORIDE. [Concomitant]
     Active Substance: TICLOPIDINE HYDROCHLORIDE
     Dosage: UNK
     Dates: start: 20090312, end: 20090312
  10. ASPARAGINASE [Suspect]
     Active Substance: ASPARAGINASE
     Dosage: UNK IU, UNK
     Dates: start: 20090306, end: 20090306
  11. VORICONAZOLE. [Suspect]
     Active Substance: VORICONAZOLE
     Dosage: 200 MG, BID
     Route: 048
     Dates: start: 200903, end: 20090322
  12. ENDOXAN [Concomitant]
     Active Substance: CYCLOPHOSPHAMIDE
     Indication: ACUTE LYMPHOCYTIC LEUKAEMIA
     Dosage: 300 MG, 2X/DAY
     Dates: start: 20090311, end: 20090312
  13. CONTRAMAL [Concomitant]
     Active Substance: TRAMADOL HYDROCHLORIDE
  14. CYCLOPHOSPHAMIDE. [Concomitant]
     Active Substance: CYCLOPHOSPHAMIDE
     Indication: ACUTE LYMPHOCYTIC LEUKAEMIA
     Dates: start: 200902
  15. VINCRISTINE [Concomitant]
     Active Substance: VINCRISTINE
  16. MUCOMYST [Concomitant]
     Active Substance: ACETYLCYSTEINE
     Dosage: UNK
  17. SULFAMETHOXAZOLE (+) TRIMETHOPRIM [Concomitant]
     Active Substance: SULFAMETHOXAZOLE\TRIMETHOPRIM
  18. TICLOPIDINE HYDROCHLORIDE. [Concomitant]
     Active Substance: TICLOPIDINE HYDROCHLORIDE
     Dosage: UNK
     Dates: start: 20090314, end: 20090314
  19. VFEND [Suspect]
     Active Substance: VORICONAZOLE
     Dosage: 200 MG, 2X/DAY
     Dates: start: 20090314, end: 20090322
  20. DAUNORUBICIN [Concomitant]
     Active Substance: DAUNORUBICIN
     Indication: ACUTE LYMPHOCYTIC LEUKAEMIA
     Dates: start: 200902
  21. ASPARAGINASE [Suspect]
     Active Substance: ASPARAGINASE
     Dosage: UNK IU, UNK
     Dates: start: 20090302, end: 20090302
  22. ASPARAGINASE [Suspect]
     Active Substance: ASPARAGINASE
     Dosage: 10800 IU, 1X/DAY
     Route: 048
     Dates: start: 20090313, end: 20090313
  23. ASPARAGINASE [Suspect]
     Active Substance: ASPARAGINASE
     Dosage: 10800 IU, QD
     Dates: start: 20090319, end: 20090319
  24. BACTRIM [Concomitant]
     Active Substance: SULFAMETHOXAZOLE\TRIMETHOPRIM
  25. ACETYLCYSTEINE. [Concomitant]
     Active Substance: ACETYLCYSTEINE
  26. CYCLOPHOSPHAMIDE. [Concomitant]
     Active Substance: CYCLOPHOSPHAMIDE
     Dates: start: 20090311, end: 20090312
  27. ASPARAGINASE [Suspect]
     Active Substance: ASPARAGINASE
     Dosage: UNK IU, UNK
     Dates: start: 20090304, end: 20090304
  28. TICLOPIDINE HYDROCHLORIDE. [Concomitant]
     Active Substance: TICLOPIDINE HYDROCHLORIDE
     Dosage: UNK
     Dates: start: 20090319, end: 20090319

REACTIONS (3)
  - Cholestasis [Not Recovered/Not Resolved]
  - Hepatic steatosis [Not Recovered/Not Resolved]
  - Hepatitis [Not Recovered/Not Resolved]

NARRATIVE: CASE EVENT DATE: 20090320
